FAERS Safety Report 24848407 (Version 3)
Quarter: 2025Q4

REPORT INFORMATION
  Report Type: Spontaneous
  Country: EU (occurrence: EU)
  Receive Date: 20250116
  Receipt Date: 20251014
  Transmission Date: 20260117
  Serious: Yes (Other)
  Sender: RANBAXY
  Company Number: EU-SUN PHARMACEUTICAL INDUSTRIES LTD-2025RR-489433

PATIENT
  Age: 77 Year
  Sex: Male
  Weight: 79 kg

DRUGS (3)
  1. SUNITINIB [Suspect]
     Active Substance: SUNITINIB
     Indication: Metastatic renal cell carcinoma
     Dosage: 1D1 - 50
     Route: 048
     Dates: start: 20240910
  2. SUNITINIB [Suspect]
     Active Substance: SUNITINIB
     Dosage: 1D1 - TO 37.5
     Route: 048
  3. SUNITINIB [Suspect]
     Active Substance: SUNITINIB
     Dosage: 1D1 - TO 25MG
     Route: 048
     Dates: end: 20241031

REACTIONS (2)
  - Retinal haemorrhage [Not Recovered/Not Resolved]
  - Malaise [Unknown]
